FAERS Safety Report 6151841-4 (Version None)
Quarter: 2009Q2

REPORT INFORMATION
  Report Type: 
  Country: None (occurrence: None)
  Receive Date: 20090410
  Receipt Date: 20090402
  Transmission Date: 20091009
  Serious: Yes (Other)
  Sender: FDA-Public Use
  Company Number: GB-PFIZER INC-2009192367

PATIENT

DRUGS (4)
  1. METHYLPREDNISOLONE AND METHYLPREDNISOLONE ACETATE AND METHYLPREDNISOLO [Suspect]
     Dosage: UNK
     Route: 042
     Dates: start: 20090224, end: 20090224
  2. PARACETAMOL [Concomitant]
  3. PIRITON [Concomitant]
  4. RITUXIMAB [Concomitant]

REACTIONS (2)
  - HYPERSENSITIVITY [None]
  - HYPOTENSION [None]
